FAERS Safety Report 12171929 (Version 2)
Quarter: 2016Q1

REPORT INFORMATION
  Report Type: Report from Study
  Country: CA (occurrence: CA)
  Receive Date: 20160311
  Receipt Date: 20160316
  Transmission Date: 20160526
  Serious: Yes (Other)
  Sender: FDA-Public Use
  Company Number: CA-GILEAD-2016-0202180

PATIENT
  Age: 52 Year
  Sex: Female

DRUGS (2)
  1. IBAVYR [Suspect]
     Active Substance: RIBAVIRIN
     Indication: CHRONIC HEPATITIS C
     Dosage: 1000 MG, QD
     Route: 048
     Dates: start: 20160128
  2. LEDIPASVIR/SOFOSBUVIR [Suspect]
     Active Substance: LEDIPASVIR\SOFOSBUVIR
     Indication: CHRONIC HEPATITIS C
     Dosage: 1 DF, QD
     Route: 048
     Dates: start: 20160128

REACTIONS (8)
  - Infection [Unknown]
  - Generalised anxiety disorder [Unknown]
  - Vomiting [Unknown]
  - Major depression [Unknown]
  - Diarrhoea [Unknown]
  - Fatigue [Unknown]
  - Suicidal ideation [Recovered/Resolved]
  - Agoraphobia [Unknown]

NARRATIVE: CASE EVENT DATE: 2016
